FAERS Safety Report 7877359-6 (Version None)
Quarter: 2011Q4

REPORT INFORMATION
  Report Type: 
  Country: None (occurrence: None)
  Receive Date: 20111031
  Receipt Date: 20111018
  Transmission Date: 20120403
  Serious: Yes (Other)
  Sender: FDA-Public Use
  Company Number: CA-ELI_LILLY_AND_COMPANY-CA201110004552

PATIENT
  Sex: Male

DRUGS (1)
  1. ZYPREXA [Suspect]
     Dosage: 1 DF, UNK
     Dates: start: 19961217, end: 20060501

REACTIONS (2)
  - WEIGHT INCREASED [None]
  - TYPE 2 DIABETES MELLITUS [None]
